FAERS Safety Report 23750866 (Version 1)
Quarter: 2024Q2

REPORT INFORMATION
  Report Type: Spontaneous
  Country: US (occurrence: US)
  Receive Date: 20240417
  Receipt Date: 20240417
  Transmission Date: 20240715
  Serious: Yes (Hospitalization, Other)
  Sender: FDA-Public Use
  Company Number: US-QUAGEN-2024QUALIT00099

PATIENT
  Age: 81 Year
  Sex: Male

DRUGS (1)
  1. VALPROIC ACID [Suspect]
     Active Substance: VALPROIC ACID
     Indication: Bipolar disorder
     Route: 065

REACTIONS (8)
  - Rhabdomyolysis [Recovering/Resolving]
  - Acute kidney injury [Unknown]
  - Hyperphosphataemia [Recovered/Resolved]
  - Metabolic acidosis [Recovering/Resolving]
  - Hyperchloraemia [Recovering/Resolving]
  - Hypovolaemia [Recovering/Resolving]
  - Fanconi syndrome [Unknown]
  - Product use in unapproved indication [Unknown]
